FAERS Safety Report 9885069 (Version 5)
Quarter: 2014Q1

REPORT INFORMATION
  Report Type: Spontaneous
  Country: FR (occurrence: FR)
  Receive Date: 20140210
  Receipt Date: 20140327
  Transmission Date: 20141002
  Serious: Yes (Death, Life-Threatening, Other)
  Sender: FDA-Public Use
  Company Number: FR-SA-2014SA010787

PATIENT
  Age: 60 Year
  Sex: Male

DRUGS (8)
  1. JEVTANA [Suspect]
     Indication: PROSTATE CANCER
     Route: 042
     Dates: start: 20131224, end: 20131224
  2. JEVTANA [Suspect]
     Indication: PROSTATE CANCER
     Route: 042
     Dates: start: 20130925
  3. JEVTANA [Suspect]
     Indication: PROSTATE CANCER
     Route: 042
     Dates: start: 20131023
  4. JEVTANA [Suspect]
     Indication: PROSTATE CANCER
     Route: 042
     Dates: start: 20131113
  5. POLARAMINE [Concomitant]
  6. ZOPHREN [Concomitant]
  7. AZANTAC [Concomitant]
  8. SOLUMEDROL [Concomitant]

REACTIONS (9)
  - Pancytopenia [Fatal]
  - Thrombocytopenia [Fatal]
  - Anaemia [Fatal]
  - Liver injury [Recovering/Resolving]
  - Agranulocytosis [Recovered/Resolved]
  - Renal failure acute [Fatal]
  - Confusional state [Recovering/Resolving]
  - Rash [Recovering/Resolving]
  - Haematuria [Not Recovered/Not Resolved]
